FAERS Safety Report 8943556 (Version 4)
Quarter: 2013Q1

REPORT INFORMATION
  Report Type: Spontaneous
  Country: US (occurrence: US)
  Receive Date: 20121204
  Receipt Date: 20130312
  Transmission Date: 20140127
  Serious: Yes (Other)
  Sender: FDA-Public Use
  Company Number: US-JNJFOC-20121113574

PATIENT
  Sex: Male
  Weight: 102.06 kg

DRUGS (8)
  1. REMICADE [Suspect]
     Indication: PSORIASIS
     Route: 042
     Dates: start: 20121203
  2. REMICADE [Suspect]
     Indication: PSORIASIS
     Route: 042
     Dates: start: 200707
  3. REMICADE [Suspect]
     Indication: PSORIATIC ARTHROPATHY
     Route: 042
     Dates: start: 20121203
  4. REMICADE [Suspect]
     Indication: PSORIATIC ARTHROPATHY
     Route: 042
     Dates: start: 200707
  5. REMICADE [Suspect]
     Indication: PSORIASIS
     Route: 042
     Dates: start: 200707
  6. REMICADE [Suspect]
     Indication: PSORIASIS
     Route: 042
     Dates: start: 20121203
  7. METHOTREXATE [Suspect]
     Indication: PRODUCT USED FOR UNKNOWN INDICATION
     Dosage: 2003 TO 2004
     Route: 065
     Dates: start: 2003, end: 2004
  8. CLOBETASOL [Concomitant]
     Route: 061
     Dates: start: 2007

REACTIONS (1)
  - Squamous cell carcinoma [Recovered/Resolved with Sequelae]
